FAERS Safety Report 21929734 (Version 2)
Quarter: 2023Q1

REPORT INFORMATION
  Report Type: Spontaneous
  Country: TR (occurrence: TR)
  Receive Date: 20230131
  Receipt Date: 20230220
  Transmission Date: 20230418
  Serious: Yes (Other)
  Sender: FDA-Public Use
  Company Number: TR-AMGEN-TURSP2023014386

PATIENT

DRUGS (4)
  1. ADALIMUMAB [Suspect]
     Active Substance: ADALIMUMAB
     Indication: Vogt-Koyanagi-Harada disease
     Dosage: 40 MILLIGRAM
     Route: 065
  2. ADALIMUMAB [Suspect]
     Active Substance: ADALIMUMAB
     Dosage: 80 MILLIGRAM (LOADING DOSE)
     Route: 065
  3. METHYLPREDNISOLONE [Concomitant]
     Active Substance: METHYLPREDNISOLONE
     Indication: Vogt-Koyanagi-Harada disease
     Dosage: 1 GRAM
     Route: 040
  4. AZATHIOPRINE [Concomitant]
     Active Substance: AZATHIOPRINE
     Indication: Vogt-Koyanagi-Harada disease
     Dosage: 2 MILLIGRAM, QD
     Route: 065

REACTIONS (5)
  - Retinal pigment epithelial tear [Unknown]
  - Subretinal fluid [Unknown]
  - Disruption of the photoreceptor inner segment-outer segment [Unknown]
  - Drug effective for unapproved indication [Unknown]
  - Off label use [Unknown]
